FAERS Safety Report 10077575 (Version 2)
Quarter: 2014Q2

REPORT INFORMATION
  Report Type: Spontaneous
  Country: US (occurrence: US)
  Receive Date: 20140414
  Receipt Date: 20140414
  Transmission Date: 20141212
  Serious: No
  Sender: FDA-Public Use
  Company Number: US-BANPHARM-20131865

PATIENT
  Age: 70 Year
  Sex: 0
  Weight: 57.15 kg

DRUGS (1)
  1. ALEVE LIQUID GELS 220 MG [Suspect]
     Indication: PAIN
     Dosage: 1 DF, QD,
     Route: 048
     Dates: start: 201302

REACTIONS (2)
  - Drug effect delayed [Unknown]
  - Incorrect drug administration duration [Unknown]
